FAERS Safety Report 7579874-1 (Version None)
Quarter: 2011Q2

REPORT INFORMATION
  Report Type: 
  Country: None (occurrence: None)
  Receive Date: 20110622
  Receipt Date: 20110616
  Transmission Date: 20111010
  Serious: Yes (Other)
  Sender: FDA-Public Use
  Company Number: 2011SP028416

PATIENT
  Age: 30 Year
  Sex: Female
  Weight: 78 kg

DRUGS (1)
  1. DESOGESTREL AND ETHINYL ESTRADIOL [Suspect]
     Indication: CONTRACEPTION
     Dosage: PO
     Route: 048
     Dates: start: 20090101

REACTIONS (9)
  - NECK PAIN [None]
  - BREAST PAIN [None]
  - LARYNGEAL NEOPLASM [None]
  - WEIGHT INCREASED [None]
  - MIGRAINE [None]
  - BREAST SWELLING [None]
  - SWELLING [None]
  - HYPOTHYROIDISM [None]
  - BREAST DISCHARGE [None]
